FAERS Safety Report 18901204 (Version 1)
Quarter: 2021Q1

REPORT INFORMATION
  Report Type: Spontaneous
  Country: US (occurrence: US)
  Receive Date: 20210216
  Receipt Date: 20210216
  Transmission Date: 20210420
  Serious: No
  Sender: FDA-Public Use
  Company Number: US-BAYER-2021-068246

PATIENT
  Age: 75 Year
  Sex: Female

DRUGS (5)
  1. OCUVITE [ASCORBIC ACID;RETINOL;TOCOPHEROL] [Concomitant]
  2. CLARITIN [Suspect]
     Active Substance: LORATADINE
     Indication: NASOPHARYNGITIS
  3. FISH OIL [Concomitant]
     Active Substance: FISH OIL
  4. CLARITIN [Suspect]
     Active Substance: LORATADINE
     Indication: HYPERSENSITIVITY
     Dosage: 1 DF, QD
     Route: 048
     Dates: start: 2020
  5. CENTRUM VITAMINTS [Concomitant]

REACTIONS (2)
  - Drainage [None]
  - Drug ineffective [Unknown]
